FAERS Safety Report 8803593 (Version 1)
Quarter: 2012Q4

REPORT INFORMATION
  Report Type: 
  Country: US (occurrence: US)
  Receive Date: 20120924
  Receipt Date: 20120924
  Transmission Date: 20130627
  Serious: No
  Sender: FDA-Public Use
  Company Number: US-ASTRAZENECA-2011SE54771

PATIENT
  Age: 65 Year
  Sex: Female

DRUGS (4)
  1. TOPROL XL [Suspect]
     Route: 048
  2. METOPROLOL [Suspect]
     Dosage: GENERIC
     Route: 048
  3. GLIPIZIDE [Concomitant]
  4. ACTOS [Concomitant]

REACTIONS (3)
  - Diabetes mellitus [Unknown]
  - Adverse event [Unknown]
  - Visual impairment [Unknown]
